FAERS Safety Report 4633900-8 (Version None)
Quarter: 2005Q2

REPORT INFORMATION
  Report Type: 
  Country: None (occurrence: None)
  Receive Date: 20050413
  Receipt Date: 20050405
  Transmission Date: 20051028
  Serious: Yes (Death)
  Sender: FDA-Public Use
  Company Number: US-BRISTOL-MYERS SQUIBB COMPANY-12922886

PATIENT
  Age: 54 Year

DRUGS (1)
  1. PARAPLATIN [Suspect]
     Dosage: DOSING: 22NOV + 15DEC04, 05JAN + 26JAN05
     Dates: start: 20050214, end: 20050214

REACTIONS (1)
  - DEATH [None]
